FAERS Safety Report 4948482-0 (Version None)
Quarter: 2006Q1

REPORT INFORMATION
  Report Type: 
  Country: None (occurrence: None)
  Receive Date: 20060201
  Receipt Date: 20051109
  Transmission Date: 20060701
  Serious: No
  Sender: FDA-Public Use
  Company Number: 2005PV004247

PATIENT
  Age: 64 Year
  Sex: Male
  Weight: 117.9352 kg

DRUGS (4)
  1. BYETTA [Suspect]
     Indication: DIABETES MELLITUS NON-INSULIN-DEPENDENT
     Dosage: 5 MCG; BID; SC
     Route: 058
     Dates: start: 20051105
  2. AVANDIA [Concomitant]
  3. METFORMIN [Concomitant]
  4. GLYBURIDE [Concomitant]

REACTIONS (1)
  - BLOOD GLUCOSE INCREASED [None]
